FAERS Safety Report 24544782 (Version 4)
Quarter: 2024Q4

REPORT INFORMATION
  Report Type: Spontaneous
  Country: US (occurrence: US)
  Receive Date: 20241024
  Receipt Date: 20241126
  Transmission Date: 20250114
  Serious: Yes (Disabling, Other)
  Sender: CHATTEM
  Company Number: US-OPELLA-2024OHG035922

PATIENT
  Sex: Female

DRUGS (1)
  1. SELENIUM SULFIDE [Suspect]
     Active Substance: SELENIUM SULFIDE
     Indication: Product used for unknown indication
     Route: 061
     Dates: start: 20240928

REACTIONS (5)
  - Blindness [Not Recovered/Not Resolved]
  - Chemical burns of eye [Unknown]
  - Pain [Unknown]
  - Scar [Not Recovered/Not Resolved]
  - Exposure via eye contact [Unknown]

NARRATIVE: CASE EVENT DATE: 20240928
